FAERS Safety Report 21351586 (Version 1)
Quarter: 2022Q3

REPORT INFORMATION
  Report Type: Report from Study
  Country: GB (occurrence: GB)
  Receive Date: 20220919
  Receipt Date: 20220919
  Transmission Date: 20221027
  Serious: Yes (Other)
  Sender: FDA-Public Use
  Company Number: GB-SAMSUNG BIOEPIS-SB-2022-12827

PATIENT
  Sex: Female

DRUGS (1)
  1. IMRALDI [Suspect]
     Active Substance: ADALIMUMAB
     Indication: Psoriatic arthropathy
     Route: 058

REACTIONS (8)
  - Immunosuppression [Unknown]
  - Type 2 diabetes mellitus [Unknown]
  - Tooth infection [Unknown]
  - Anxiety [Not Recovered/Not Resolved]
  - Psoriatic arthropathy [Unknown]
  - Depression [Unknown]
  - Loss of personal independence in daily activities [Unknown]
  - Poor quality sleep [Unknown]
